FAERS Safety Report 10542709 (Version 1)
Quarter: 2014Q4

REPORT INFORMATION
  Report Type: Spontaneous
  Country: US (occurrence: None)
  Receive Date: 20141010
  Receipt Date: 20141010
  Transmission Date: 20150529
  Serious: Yes (Other)
  Sender: FDA-Public Use
  Company Number: 163-POMAL-14073865

PATIENT
  Age: 86 Year
  Sex: Female

DRUGS (9)
  1. OMEGA-3 ( OMEGA-3 TRIGLYCERIDES) [Concomitant]
  2. METOPROLOL TARTRATE. [Concomitant]
     Active Substance: METOPROLOL TARTRATE
  3. DEXAMETHASONE. [Concomitant]
     Active Substance: DEXAMETHASONE
  4. POMALYST [Suspect]
     Active Substance: POMALIDOMIDE
     Indication: PLASMA CELL MYELOMA
     Dosage: 4 MG, 21 IN 21 D, PO?PERMANENTLY DISCONTINUED
     Route: 048
     Dates: start: 20140617
  5. COUMADIN ( WARFARIN SODIUM) [Concomitant]
  6. KLOR-CON ( POTASSIUM CHLORIDE) [Concomitant]
  7. DILTIAZEM HCL CD ( DILTIAZEM HYDROCHLORIDE) [Concomitant]
  8. IRON [Concomitant]
     Active Substance: IRON
  9. ISOSORBIDE DINITRATE. [Concomitant]
     Active Substance: ISOSORBIDE DINITRATE

REACTIONS (1)
  - Hypersensitivity [None]

NARRATIVE: CASE EVENT DATE: 2014
